FAERS Safety Report 6982414-9 (Version None)
Quarter: 2010Q3

REPORT INFORMATION
  Report Type: 
  Country: None (occurrence: None)
  Receive Date: 20100914
  Receipt Date: 20100106
  Transmission Date: 20110219
  Serious: No
  Sender: FDA-Public Use
  Company Number: US-PFIZER INC-2010003192

PATIENT
  Sex: Female
  Weight: 50.802 kg

DRUGS (5)
  1. LYRICA [Suspect]
     Indication: PAIN
     Dosage: UNK
     Route: 048
  2. LYRICA [Suspect]
     Dosage: 150 MG, 1X/DAY
     Route: 048
     Dates: start: 20090101, end: 20090101
  3. LYRICA [Suspect]
     Dosage: 50 MG, 1X/DAY
     Route: 048
  4. AMLODIPINE/VALSARTAN [Concomitant]
     Indication: HYPERTENSION
  5. ALEVE (CAPLET) [Concomitant]
     Indication: ARTHRALGIA

REACTIONS (2)
  - GAIT DISTURBANCE [None]
  - PAIN [None]
